FAERS Safety Report 7273462-2 (Version None)
Quarter: 2011Q1

REPORT INFORMATION
  Report Type: 
  Country: None (occurrence: None)
  Receive Date: 20110203
  Receipt Date: 20110125
  Transmission Date: 20110831
  Serious: Yes (Hospitalization)
  Sender: FDA-Public Use
  Company Number: US-ASTRAZENECA-2011SE04421

PATIENT
  Age: 18036 Day
  Sex: Male
  Weight: 72.6 kg

DRUGS (6)
  1. PROVENTIL [Concomitant]
  2. SEROQUEL [Suspect]
     Indication: BIPOLAR DISORDER
     Route: 048
     Dates: start: 20080101
  3. ADVAIR [Concomitant]
  4. NEXIUM [Suspect]
     Indication: GASTROOESOPHAGEAL REFLUX DISEASE
     Route: 048
     Dates: start: 20080101
  5. NORVASC [Concomitant]
  6. DEPAKOTE [Concomitant]

REACTIONS (2)
  - HERNIA [None]
  - LIMB CRUSHING INJURY [None]
